FAERS Safety Report 7571819-3 (Version None)
Quarter: 2011Q2

REPORT INFORMATION
  Report Type: 
  Country: None (occurrence: None)
  Receive Date: 20110624
  Receipt Date: 20110621
  Transmission Date: 20111010
  Serious: Yes (Disabling, Other)
  Sender: FDA-Public Use
  Company Number: US-PFIZER INC-2011132936

PATIENT
  Sex: Male

DRUGS (5)
  1. DIAZEPAM [Concomitant]
     Indication: NERVOUS SYSTEM DISORDER
     Dosage: 5 MG, 2X/DAY
  2. DILANTIN [Suspect]
     Indication: CONVULSION
     Dosage: 100 MG, 6X/DAY
     Route: 048
  3. CELEBREX [Suspect]
     Indication: ARTHRITIS
     Dosage: 200 MG DAILY
     Route: 048
  4. METOCLOPRAMIDE [Concomitant]
     Indication: GASTROOESOPHAGEAL REFLUX DISEASE
     Dosage: 10 MG, 4X/DAY
  5. NEXIUM [Concomitant]
     Indication: GASTROOESOPHAGEAL REFLUX DISEASE
     Dosage: 40 MG DAILY
     Route: 048

REACTIONS (2)
  - ARTHRITIS [None]
  - LIVER DISORDER [None]
